FAERS Safety Report 7458246-4 (Version None)
Quarter: 2011Q2

REPORT INFORMATION
  Report Type: 
  Country: None (occurrence: None)
  Receive Date: 20110504
  Receipt Date: 20110427
  Transmission Date: 20111010
  Serious: Yes (Other)
  Sender: FDA-Public Use
  Company Number: GB-MERCK-1104GBR00126

PATIENT
  Age: 81 Year
  Sex: Female

DRUGS (8)
  1. COSOPT [Suspect]
     Indication: GLAUCOMA
     Route: 047
  2. LATANOPROST [Suspect]
     Indication: GLAUCOMA
     Route: 047
  3. ANASTROZOLE [Concomitant]
     Route: 048
  4. BENDROFLUMETHIAZIDE [Concomitant]
     Route: 048
  5. BRIMONIDINE TARTRATE [Suspect]
     Indication: GLAUCOMA
     Route: 047
  6. LEVOTHYROXINE SODIUM [Concomitant]
     Route: 048
  7. ALENDRONATE SODIUM [Concomitant]
     Route: 048
  8. CALCIUM CARBONATE AND CHOLECALCIFEROL [Concomitant]
     Route: 048

REACTIONS (2)
  - DRUG INEFFECTIVE [None]
  - INTRAOCULAR PRESSURE INCREASED [None]
